FAERS Safety Report 17430076 (Version 1)
Quarter: 2020Q1

REPORT INFORMATION
  Report Type: Spontaneous
  Country: US (occurrence: US)
  Receive Date: 20200218
  Receipt Date: 20200218
  Transmission Date: 20200409
  Serious: No
  Sender: FDA-Public Use
  Company Number: US-PFIZER INC-2020067945

PATIENT
  Age: 28 Year
  Sex: Female
  Weight: 65.77 kg

DRUGS (3)
  1. SUDAFED [Concomitant]
     Active Substance: PSEUDOEPHEDRINE HYDROCHLORIDE
     Indication: SINUS DISORDER
     Dosage: UNK UNK, AS NEEDED
     Dates: start: 202002
  2. TYLENOL [Concomitant]
     Active Substance: ACETAMINOPHEN
     Indication: RESPIRATORY DISORDER
     Dosage: 500 MG, UNK
     Dates: start: 202002
  3. AZITHROMYCIN ANHYDROUS. [Suspect]
     Active Substance: AZITHROMYCIN ANHYDROUS
     Indication: SINUSITIS
     Dosage: 250 MG, 2X/DAY (TWO BY MOUTH THE FIRST DAY)
     Route: 048
     Dates: start: 20200207, end: 20200208

REACTIONS (7)
  - Rash macular [Recovered/Resolved]
  - Glossodynia [Recovered/Resolved]
  - Lip pain [Recovered/Resolved]
  - Nausea [Recovered/Resolved]
  - Swollen tongue [Recovered/Resolved]
  - Off label use [Unknown]
  - Product use in unapproved indication [Unknown]

NARRATIVE: CASE EVENT DATE: 20200207
